FAERS Safety Report 11786448 (Version 5)
Quarter: 2016Q3

REPORT INFORMATION
  Report Type: Spontaneous
  Country: BR (occurrence: BR)
  Receive Date: 20151130
  Receipt Date: 20160801
  Transmission Date: 20161109
  Serious: Yes (Other)
  Sender: FDA-Public Use
  Company Number: BR-JNJFOC-20151126534

PATIENT
  Sex: Female

DRUGS (2)
  1. SIMPONI [Suspect]
     Active Substance: GOLIMUMAB
     Indication: RHEUMATOID ARTHRITIS
     Route: 058
     Dates: start: 20130713, end: 20150920
  2. SIMPONI [Suspect]
     Active Substance: GOLIMUMAB
     Indication: RHEUMATOID ARTHRITIS
     Route: 058

REACTIONS (7)
  - Flavivirus infection [Unknown]
  - Pneumonia [Unknown]
  - Arthralgia [Unknown]
  - Sinusitis [Unknown]
  - Decreased immune responsiveness [Unknown]
  - Bone prosthesis insertion [Unknown]
  - Surgery [Unknown]

NARRATIVE: CASE EVENT DATE: 2015
